FAERS Safety Report 7749990-X (Version None)
Quarter: 2011Q3

REPORT INFORMATION
  Report Type: 
  Country: None (occurrence: None)
  Receive Date: 20110912
  Receipt Date: 20110829
  Transmission Date: 20111222
  Serious: Yes (Other)
  Sender: FDA-Public Use
  Company Number: DSA_47559_2011

PATIENT
  Age: 61 Year
  Sex: Female

DRUGS (2)
  1. DILTIAZEM HYDROCHLORIDE [Suspect]
     Indication: HYPERTENSION
     Dosage: (90 MG QD ORAL)
     Route: 048
     Dates: start: 19750517, end: 19750614
  2. CHLORDIAZEPOXIDE [Concomitant]

REACTIONS (2)
  - RASH [None]
  - PRURITUS [None]
